FAERS Safety Report 4349442-3 (Version None)
Quarter: 2004Q2

REPORT INFORMATION
  Report Type: 
  Country: None (occurrence: None)
  Receive Date: 20040426
  Receipt Date: 20040412
  Transmission Date: 20050107
  Serious: Yes (Hospitalization)
  Sender: FDA-Public Use
  Company Number: K200400545

PATIENT
  Age: 57 Year
  Sex: Male

DRUGS (7)
  1. ALTACE [Suspect]
     Indication: HYPERTENSION
     Dosage: ORAL
     Route: 048
     Dates: start: 20040208
  2. KETOPROFEN [Suspect]
     Indication: MUSCULOSKELETAL PAIN
     Dosage: 150 MG, TID, ORAL
     Route: 048
  3. CORTANCYL (PREDNISONE) 7MG [Suspect]
     Indication: MUSCULOSKELETAL PAIN
     Dosage: 7 MG, QD, ORAL
     Route: 048
  4. TENORDATE (NIFEDIPINE, ATENOLOL) CAPSULE [Suspect]
     Indication: HYPERTENSION
     Dosage: ORAL
     Route: 048
     Dates: start: 20040208
  5. OMEPRAZOLE [Suspect]
     Indication: ULCER
     Dosage: 20 MG, QD, ORAL
     Route: 048
  6. ENBREL [Suspect]
     Indication: MUSCULOSKELETAL PAIN
     Dosage: 25 MG, BIW, SUBCUTANEOUS
     Route: 058
     Dates: start: 20030801, end: 20040209
  7. ENBREL [Suspect]
     Indication: MUSCULOSKELETAL PAIN
     Dosage: 25 MG, BIW, SUBCUTANEOUS
     Route: 058
     Dates: start: 20040223

REACTIONS (1)
  - MYOCARDIAL INFARCTION [None]
